FAERS Safety Report 6781674-7 (Version None)
Quarter: 2010Q2

REPORT INFORMATION
  Report Type: 
  Country: None (occurrence: None)
  Receive Date: 20100621
  Receipt Date: 20100610
  Transmission Date: 20101027
  Serious: Yes (Hospitalization)
  Sender: FDA-Public Use
  Company Number: SE-BAXTER-2010BH014860

PATIENT
  Sex: Female

DRUGS (14)
  1. GAMMAGARD LIQUID [Suspect]
     Indication: DERMATOMYOSITIS
     Route: 042
     Dates: start: 20100504, end: 20100504
  2. GAMMAGARD LIQUID [Suspect]
     Indication: OFF LABEL USE
     Route: 042
     Dates: start: 20100504, end: 20100504
  3. GAMMAGARD LIQUID [Suspect]
     Route: 065
     Dates: start: 20100401, end: 20100401
  4. GAMMAGARD LIQUID [Suspect]
     Route: 065
     Dates: start: 20100401, end: 20100401
  5. GAMMAGARD LIQUID [Suspect]
     Route: 065
     Dates: start: 20070101
  6. GAMMAGARD LIQUID [Suspect]
     Route: 065
     Dates: start: 20070101
  7. SANDIMMUNE [Suspect]
     Indication: DERMATOMYOSITIS
     Route: 065
     Dates: end: 20100101
  8. METOJECT [Suspect]
     Indication: DERMATOMYOSITIS
     Route: 065
     Dates: end: 20100101
  9. OMEPRAZOLE [Concomitant]
  10. FOLACIN [Concomitant]
  11. SOLVEZINC [Concomitant]
  12. PREDNISOLONE [Concomitant]
  13. LACTULOSE [Concomitant]
  14. CALCICHEW-D3 [Concomitant]

REACTIONS (7)
  - CONDITION AGGRAVATED [None]
  - DYSPHAGIA [None]
  - ERYTHEMA [None]
  - LEUKOPENIA [None]
  - MUSCULAR WEAKNESS [None]
  - OFF LABEL USE [None]
  - PAIN OF SKIN [None]
